FAERS Safety Report 8167070-9 (Version None)
Quarter: 2012Q1

REPORT INFORMATION
  Report Type: 
  Country: None (occurrence: None)
  Receive Date: 20120227
  Receipt Date: 20120216
  Transmission Date: 20120608
  Serious: Yes (Hospitalization)
  Sender: FDA-Public Use
  Company Number: US-JNJFOC-20120210213

PATIENT
  Sex: Male
  Weight: 51.9 kg

DRUGS (3)
  1. HUMIRA [Concomitant]
     Dates: start: 20110601
  2. PREDNISONE [Concomitant]
  3. REMICADE [Suspect]
     Indication: CROHN'S DISEASE
     Route: 042
     Dates: start: 20051022, end: 20110422

REACTIONS (1)
  - CROHN'S DISEASE [None]
